FAERS Safety Report 5578735-7 (Version None)
Quarter: 2007Q4

REPORT INFORMATION
  Report Type: 
  Country: None (occurrence: None)
  Receive Date: 20071227
  Receipt Date: 20071218
  Transmission Date: 20080405
  Serious: Yes (Other)
  Sender: FDA-Public Use
  Company Number: CHPA2007US13999

PATIENT
  Age: 16 Year
  Sex: Male

DRUGS (1)
  1. NODOZ (NCH)(CAFFEINE) CAPLET [Suspect]
     Indication: SOMNOLENCE
     Dosage: 1200 MG, ONCE/SINGLE, ORAL
     Route: 048
     Dates: start: 20071217, end: 20071217

REACTIONS (4)
  - ANXIETY [None]
  - INCORRECT DOSE ADMINISTERED [None]
  - MUSCLE TWITCHING [None]
  - NAUSEA [None]
